FAERS Safety Report 26159916 (Version 1)
Quarter: 2025Q4

REPORT INFORMATION
  Report Type: Spontaneous
  Country: JP (occurrence: JP)
  Receive Date: 20251216
  Receipt Date: 20251216
  Transmission Date: 20260118
  Serious: Yes (Other)
  Sender: MERCK SHARP & DOHME LLC
  Company Number: JP-009507513-2356019

PATIENT
  Age: 44 Year
  Sex: Female

DRUGS (2)
  1. KEYTRUDA [Suspect]
     Active Substance: PEMBROLIZUMAB
     Indication: Cervix carcinoma stage IV
     Route: 041
     Dates: start: 202407, end: 202507
  2. BEVACIZUMAB [Suspect]
     Active Substance: BEVACIZUMAB
     Indication: Cervix carcinoma stage IV
     Route: 065
     Dates: end: 202507

REACTIONS (5)
  - Intestinal perforation [Unknown]
  - Gastroenteritis radiation [Unknown]
  - Ejection fraction decreased [Unknown]
  - Myocarditis [Recovered/Resolved]
  - Rectal ulcer [Unknown]

NARRATIVE: CASE EVENT DATE: 20250701
